FAERS Safety Report 14234260 (Version 1)
Quarter: 2017Q4

REPORT INFORMATION
  Report Type: Spontaneous
  Country: US (occurrence: US)
  Receive Date: 20171129
  Receipt Date: 20171129
  Transmission Date: 20180321
  Serious: No
  Sender: FDA-Public Use
  Company Number: US-JNJFOC-20170926322

PATIENT
  Sex: Female

DRUGS (7)
  1. TYLENOL [Suspect]
     Active Substance: ACETAMINOPHEN
     Indication: PRODUCT USED FOR UNKNOWN INDICATION
     Route: 065
  2. BAYER ASPIRIN [Concomitant]
     Active Substance: ASPIRIN
     Indication: ANTICOAGULANT THERAPY
     Route: 065
  3. TYLENOL ARTHRITIS PAIN [Suspect]
     Active Substance: ACETAMINOPHEN
     Route: 065
  4. TYLENOL EXTRA STRENGTH [Suspect]
     Active Substance: ACETAMINOPHEN
     Indication: PRODUCT USED FOR UNKNOWN INDICATION
     Dosage: 500 MG, ONE
     Route: 065
  5. TYLENOL [Suspect]
     Active Substance: ACETAMINOPHEN
     Route: 065
  6. TYLENOL ARTHRITIS PAIN [Suspect]
     Active Substance: ACETAMINOPHEN
     Indication: PRODUCT USED FOR UNKNOWN INDICATION
     Route: 065
  7. BENADRYL ALLERGY [Suspect]
     Active Substance: DIPHENHYDRAMINE HYDROCHLORIDE
     Indication: SLEEP DISORDER
     Route: 065

REACTIONS (11)
  - Lacrimation increased [Unknown]
  - Incorrect dose administered [Unknown]
  - Multiple allergies [Unknown]
  - Seasonal allergy [Unknown]
  - Pain [Unknown]
  - Sneezing [Unknown]
  - Rhinorrhoea [Unknown]
  - Bronchitis [Unknown]
  - Insomnia [Unknown]
  - Throat irritation [Unknown]
  - Product use in unapproved indication [Unknown]
